FAERS Safety Report 8823544 (Version 1)
Quarter: 2012Q4

REPORT INFORMATION
  Report Type: 
  Country: US (occurrence: US)
  Receive Date: 20121003
  Receipt Date: 20121003
  Transmission Date: 20130627
  Serious: No
  Sender: FDA-Public Use
  Company Number: US-VERTEX PHARMACEUTICAL INC.-2012-021055

PATIENT

DRUGS (1)
  1. KALYDECO [Suspect]
     Indication: CYSTIC FIBROSIS
     Dosage: 150 mg, bid
     Route: 048
     Dates: start: 201204

REACTIONS (3)
  - Off label use [Unknown]
  - Forced expiratory volume increased [Unknown]
  - Weight increased [Unknown]
